FAERS Safety Report 9776921 (Version 2)
Quarter: 2013Q4

REPORT INFORMATION
  Report Type: Report from Study
  Country: ES (occurrence: ES)
  Receive Date: 20131221
  Receipt Date: 20131227
  Transmission Date: 20140711
  Serious: Yes (Hospitalization)
  Sender: FDA-Public Use
  Company Number: ES-ASTRAZENECA-2013SE92111

PATIENT
  Age: 24865 Day
  Sex: Male

DRUGS (12)
  1. AZD6140 [Suspect]
     Indication: CORONARY ARTERY DISEASE
     Route: 048
     Dates: start: 20121218, end: 20131213
  2. RAMIPRIL [Concomitant]
     Indication: HYPERTENSION
     Route: 048
  3. PRANDIN [Concomitant]
     Indication: TYPE 2 DIABETES MELLITUS
     Route: 048
  4. LECARNIDIPINO [Concomitant]
     Indication: HYPERTENSION
     Route: 048
  5. METFORMIN [Concomitant]
     Indication: TYPE 2 DIABETES MELLITUS
     Route: 048
  6. PANTOPRAZOL [Concomitant]
     Indication: GASTRITIS PROPHYLAXIS
     Route: 048
  7. CARVEDILOL [Concomitant]
     Indication: HYPERTENSION
     Route: 048
     Dates: start: 20121218
  8. CARVEDILOL [Concomitant]
     Indication: MYOCARDIAL INFARCTION
     Route: 048
     Dates: start: 20121218
  9. INSULIN LANTUS [Concomitant]
     Indication: TYPE 2 DIABETES MELLITUS
     Route: 058
  10. CORLENTOR [Concomitant]
     Indication: DYSPNOEA EXERTIONAL
     Route: 048
     Dates: start: 20131009
  11. ASA [Concomitant]
     Route: 048
  12. ATORVASTATIN [Concomitant]
     Indication: DYSLIPIDAEMIA
     Route: 048

REACTIONS (1)
  - Gastrointestinal haemorrhage [Not Recovered/Not Resolved]
